FAERS Safety Report 17338692 (Version 1)
Quarter: 2020Q1

REPORT INFORMATION
  Report Type: Spontaneous
  Country: US (occurrence: US)
  Receive Date: 20200128
  Receipt Date: 20200128
  Transmission Date: 20200409
  Serious: Yes (Hospitalization, Other)
  Sender: FDA-Public Use
  Company Number: None

PATIENT
  Age: 76 Year

DRUGS (6)
  1. VITAMIN D 1000 IU [Concomitant]
     Dates: start: 20190901
  2. COENZYME Q10 200MG [Concomitant]
     Dates: start: 20190901
  3. PRAVASTATIN. [Concomitant]
     Active Substance: PRAVASTATIN
     Dates: start: 20190901
  4. VITAMIN B12 [Concomitant]
     Active Substance: CYANOCOBALAMIN
     Dates: start: 20190901
  5. ASPIRIN 81 MG [Concomitant]
     Active Substance: ASPIRIN
     Dates: start: 20190901
  6. INLYTA [Suspect]
     Active Substance: AXITINIB
     Indication: RENAL CELL CARCINOMA
     Route: 048
     Dates: start: 20190904, end: 20200124

REACTIONS (7)
  - Vomiting [None]
  - Fall [None]
  - Decreased appetite [None]
  - Asthenia [None]
  - Renal failure [None]
  - Syncope [None]
  - Diarrhoea [None]

NARRATIVE: CASE EVENT DATE: 20200124
